FAERS Safety Report 5883711-0 (Version None)
Quarter: 2008Q3

REPORT INFORMATION
  Report Type: 
  Country: None (occurrence: None)
  Receive Date: 20080910
  Receipt Date: 20080822
  Transmission Date: 20090109
  Serious: Yes (Other)
  Sender: FDA-Public Use
  Company Number: 2008S1016171

PATIENT
  Age: 44 Year
  Sex: Female
  Weight: 84 kg

DRUGS (2)
  1. MIRTAZAPINE [Suspect]
     Indication: DEPRESSION
     Dosage: ; DAILY; ORAL
     Route: 048
     Dates: start: 20080226, end: 20080620
  2. VENLAFAXINE HCL [Suspect]
     Indication: DEPRESSION
     Dosage: ; DAILY; ORAL
     Route: 048
     Dates: start: 20080610, end: 20080813

REACTIONS (1)
  - OBSESSIVE THOUGHTS [None]
